FAERS Safety Report 26166295 (Version 2)
Quarter: 2025Q4

REPORT INFORMATION
  Report Type: Report from Study
  Country: CA (occurrence: CA)
  Receive Date: 20251216
  Receipt Date: 20251229
  Transmission Date: 20260118
  Serious: Yes (Other)
  Sender: Alvotech
  Company Number: CA-JAMP PHARMA CORPORATION-2023-JAM-CA-02384

PATIENT
  Sex: Male

DRUGS (2)
  1. SIMLANDI [Suspect]
     Active Substance: ADALIMUMAB-RYVK
     Indication: Crohn^s disease
     Dosage: 40 MILLIGRAM, WEEKLY
     Route: 058
  2. SIMLANDI [Suspect]
     Active Substance: ADALIMUMAB-RYVK
     Indication: Crohn^s disease
     Dosage: 40 MG, BI-WEEKLY
     Route: 065
     Dates: start: 20231015

REACTIONS (11)
  - Crohn^s disease [Unknown]
  - Feeding disorder [Unknown]
  - Abscess drainage [Unknown]
  - Discharge [Not Recovered/Not Resolved]
  - Colonoscopy abnormal [Unknown]
  - Abscess [Unknown]
  - Haemorrhage [Not Recovered/Not Resolved]
  - Malaise [Unknown]
  - Drug effect less than expected [Unknown]
  - Product substitution issue [Unknown]
  - Product dose omission issue [Unknown]
